APPROVED DRUG PRODUCT: TADALAFIL
Active Ingredient: TADALAFIL
Strength: 20MG
Dosage Form/Route: TABLET;ORAL
Application: A217606 | Product #004 | TE Code: AB1
Applicant: FOURRTS INDIA LABORATORIES PRIVATE LTD
Approved: Aug 13, 2024 | RLD: No | RS: No | Type: RX